FAERS Safety Report 8340304-3 (Version None)
Quarter: 2012Q2

REPORT INFORMATION
  Report Type: 
  Country: None (occurrence: None)
  Receive Date: 20120507
  Receipt Date: 20120507
  Transmission Date: 20120825
  Serious: Yes (Life-Threatening, Other)
  Sender: FDA-Public Use
  Company Number: None

PATIENT
  Age: 51 Year
  Sex: Female
  Weight: 42.184 kg

DRUGS (2)
  1. LISINOPRIL [Suspect]
     Indication: HYPERTENSION
     Dosage: |DOSAGETEXT: 20MG. DAILY|
     Dates: start: 20120127, end: 20120504
  2. INDERAL [Concomitant]
     Route: 048

REACTIONS (8)
  - DECREASED APPETITE [None]
  - TACHYCARDIA [None]
  - NAUSEA [None]
  - EATING DISORDER [None]
  - CHRONIC OBSTRUCTIVE PULMONARY DISEASE [None]
  - BLOOD PRESSURE DECREASED [None]
  - CHEST PAIN [None]
  - DYSPNOEA [None]
